FAERS Safety Report 10226789 (Version 1)
Quarter: 2014Q2

REPORT INFORMATION
  Report Type: Spontaneous
  Country: CN (occurrence: CN)
  Receive Date: 20140610
  Receipt Date: 20140610
  Transmission Date: 20141212
  Serious: Yes (Hospitalization, Other)
  Sender: FDA-Public Use
  Company Number: CN-009507513-1406CHN002689

PATIENT
  Age: 75 Year
  Sex: Male

DRUGS (3)
  1. PROSCAR [Suspect]
     Indication: BENIGN PROSTATIC HYPERPLASIA
     Dosage: 5 MG, QD
     Route: 048
     Dates: start: 2012, end: 2012
  2. PROSCAR [Suspect]
     Dosage: 5 MG, QD
     Route: 048
     Dates: start: 201312
  3. RECOMBINANT HUMAN INTERLEUKIN-2 (125ALA) [Concomitant]
     Indication: BLADDER CANCER
     Dosage: UNK
     Dates: start: 201312

REACTIONS (3)
  - Bladder cancer recurrent [Recovered/Resolved]
  - Surgery [Recovered/Resolved]
  - Drug ineffective [Not Recovered/Not Resolved]
